FAERS Safety Report 7346716-9 (Version None)
Quarter: 2011Q1

REPORT INFORMATION
  Report Type: 
  Country: None (occurrence: None)
  Receive Date: 20110311
  Receipt Date: 20110302
  Transmission Date: 20110831
  Serious: Yes (Other)
  Sender: FDA-Public Use
  Company Number: JP-B.I. PHARMACEUTICALS,INC./RIDGEFIELD-2011-BP-06128NB

PATIENT
  Age: 87 Year
  Sex: Female
  Weight: 38 kg

DRUGS (8)
  1. MUCOSTA [Concomitant]
     Indication: GASTRIC MUCOSAL LESION
     Dosage: 300 MG
     Route: 048
     Dates: end: 20100619
  2. RENIVACE [Suspect]
     Indication: HYPERTENSION
     Dosage: 5 MG
     Route: 048
     Dates: end: 20100619
  3. LORCAM [Concomitant]
     Indication: ANALGESIC THERAPY
     Dosage: 12 MG
     Route: 048
     Dates: end: 20100619
  4. OPALMON [Concomitant]
     Indication: NEURALGIA
     Dosage: 15 MCG
     Route: 048
     Dates: end: 20100619
  5. MYONAL [Concomitant]
     Dosage: 150 MG
     Route: 048
     Dates: end: 20100619
  6. LOCHOL [Concomitant]
     Indication: HYPERLIPIDAEMIA
     Dosage: 10 MG
     Route: 048
     Dates: end: 20100619
  7. MICARDIS [Suspect]
     Indication: HYPERTENSION
     Dosage: 40 MG
     Route: 048
     Dates: end: 20100619
  8. RECALBON [Suspect]
     Indication: OSTEOPOROSIS
     Dosage: 1 MG
     Route: 048
     Dates: start: 20091226, end: 20100619

REACTIONS (1)
  - TUBULOINTERSTITIAL NEPHRITIS [None]
